FAERS Safety Report 5469720-4 (Version None)
Quarter: 2007Q3

REPORT INFORMATION
  Report Type: 
  Country: None (occurrence: None)
  Receive Date: 20070927
  Receipt Date: 20070919
  Transmission Date: 20080115
  Serious: Yes (Hospitalization)
  Sender: FDA-Public Use
  Company Number: CA-JNJFOC-20070400208

PATIENT
  Sex: Male
  Weight: 85.5 kg

DRUGS (3)
  1. REMICADE [Suspect]
     Dosage: 300 MG, SECOND LOADING DOSE
     Route: 042
  2. REMICADE [Suspect]
     Dosage: 300 MG, FIRST LOADING DOSE
     Route: 042
  3. REMICADE [Suspect]
     Indication: RHEUMATOID ARTHRITIS
     Route: 042

REACTIONS (1)
  - DIVERTICULUM [None]
